FAERS Safety Report 12166066 (Version 1)
Quarter: 2016Q1

REPORT INFORMATION
  Report Type: Spontaneous
  Country: NL (occurrence: NL)
  Receive Date: 20160309
  Receipt Date: 20160309
  Transmission Date: 20160526
  Serious: Yes (Life-Threatening)
  Sender: FDA-Public Use
  Company Number: NL-DEP_13808_2016

PATIENT
  Sex: Male

DRUGS (12)
  1. LANTUS [Concomitant]
     Active Substance: INSULIN GLARGINE
     Dosage: DF
  2. OMEPRAZOLE. [Concomitant]
     Active Substance: OMEPRAZOLE
     Dosage: DF
  3. OXYCODON [Concomitant]
     Active Substance: OXYCODONE
     Dosage: DF
  4. INSULIN ASPART [Concomitant]
     Active Substance: INSULIN ASPART
     Dosage: DF
  5. FRAXIPARINE [Concomitant]
     Active Substance: NADROPARIN CALCIUM
     Dosage: DF
  6. FLUVOXAMINE MALEATE. [Concomitant]
     Active Substance: FLUVOXAMINE MALEATE
     Dosage: DF
  7. DICLOFENAC SODIUM (DICLOFENAC SODIUM) [Suspect]
     Active Substance: DICLOFENAC SODIUM
     Indication: ARTHRALGIA
     Dates: start: 20160103, end: 20160107
  8. FLUCLOXACILLIN (NGX) (FLUCLOXACILLIN) [Suspect]
     Active Substance: FLUCLOXACILLIN
     Indication: ARTHRITIS BACTERIAL
     Dosage: (3DD2)
     Dates: start: 20160103, end: 20160107
  9. DICLOFENAC POTASSIUM (DICLOFENAC POTASSIUM) [Suspect]
     Active Substance: DICLOFENAC POTASSIUM
     Indication: ARTHRALGIA
     Dates: start: 20160102, end: 20160103
  10. PARACETAMOL [Concomitant]
     Active Substance: ACETAMINOPHEN
     Dosage: DF
  11. MACROGOL [Concomitant]
     Active Substance: POLYETHYLENE GLYCOLS
     Dosage: DF; POWDER
  12. METFORMIN HYDROCHLORIDE. [Concomitant]
     Active Substance: METFORMIN HYDROCHLORIDE
     Dosage: DF

REACTIONS (3)
  - Acute kidney injury [Recovering/Resolving]
  - Hepatitis toxic [Recovering/Resolving]
  - Haemodialysis [None]

NARRATIVE: CASE EVENT DATE: 20160107
